FAERS Safety Report 4264539-4 (Version None)
Quarter: 2004Q1

REPORT INFORMATION
  Report Type: 
  Country: None (occurrence: None)
  Receive Date: 20040102
  Receipt Date: 20031222
  Transmission Date: 20041129
  Serious: Yes (Hospitalization)
  Sender: FDA-Public Use
  Company Number: USA031049079

PATIENT

DRUGS (1)
  1. FORTEO [Suspect]

REACTIONS (1)
  - HIP ARTHROPLASTY [None]
